FAERS Safety Report 13072614 (Version 2)
Quarter: 2018Q1

REPORT INFORMATION
  Report Type: Spontaneous
  Country: US (occurrence: US)
  Receive Date: 20161229
  Receipt Date: 20180115
  Transmission Date: 20180508
  Serious: Yes (Other)
  Sender: FDA-Public Use
  Company Number: US-SA-2016SA179210

PATIENT
  Age: 42 Year
  Sex: Female
  Weight: 68 kg

DRUGS (2)
  1. TAXOTERE [Suspect]
     Active Substance: DOCETAXEL
     Indication: BREAST CANCER FEMALE
     Route: 051
     Dates: start: 20130403, end: 20130403
  2. TAXOTERE [Suspect]
     Active Substance: DOCETAXEL
     Indication: BREAST CANCER FEMALE
     Route: 051
     Dates: start: 20121219, end: 20121219

REACTIONS (5)
  - Injury [Unknown]
  - Alopecia [Recovering/Resolving]
  - Hair texture abnormal [Unknown]
  - Hair colour changes [Unknown]
  - Psychological trauma [Unknown]

NARRATIVE: CASE EVENT DATE: 201310
